FAERS Safety Report 9900669 (Version 1)
Quarter: 2014Q1

REPORT INFORMATION
  Report Type: Spontaneous
  Country: PL (occurrence: PL)
  Receive Date: 20140217
  Receipt Date: 20140217
  Transmission Date: 20141002
  Serious: Yes (Life-Threatening, Hospitalization)
  Sender: FDA-Public Use
  Company Number: PL-009507513-1402POL006910

PATIENT
  Age: 60 Year
  Sex: Female
  Weight: 86 kg

DRUGS (3)
  1. VICTRELIS [Suspect]
     Indication: CHRONIC HEPATITIS C
     Dosage: 600 (UNIT NOT PROVIDED) TOTAL DAILY DOSE, 3X1
     Route: 048
     Dates: start: 201309
  2. PEGINTRON [Suspect]
     Indication: CHRONIC HEPATITIS C
     Dosage: 100 (UINT NOT PROVIDED) ONCE A WEEK
     Route: 058
     Dates: start: 201309
  3. RIBAVIRIN [Suspect]
     Route: 048

REACTIONS (3)
  - Injection site infection [Recovered/Resolved]
  - Pyrexia [Recovered/Resolved]
  - Neutropenia [Recovered/Resolved]
